FAERS Safety Report 6771890-2 (Version None)
Quarter: 2010Q2

REPORT INFORMATION
  Report Type: 
  Country: None (occurrence: None)
  Receive Date: 20100616
  Receipt Date: 20100401
  Transmission Date: 20101027
  Serious: No
  Sender: FDA-Public Use
  Company Number: US-ASTRAZENECA-2010SE14490

PATIENT
  Age: 749 Month
  Sex: Female
  Weight: 77.1 kg

DRUGS (2)
  1. ENTOCORT EC [Suspect]
     Indication: DIARRHOEA
     Route: 048
     Dates: start: 20090701, end: 20100101
  2. ALLEGRA [Concomitant]

REACTIONS (5)
  - ABDOMINAL DISTENSION [None]
  - ANORECTAL DISCOMFORT [None]
  - FURUNCLE [None]
  - STAPHYLOCOCCAL INFECTION [None]
  - URTICARIA [None]
